FAERS Safety Report 21767131 (Version 1)
Quarter: 2022Q4

REPORT INFORMATION
  Report Type: Spontaneous
  Country: US (occurrence: None)
  Receive Date: 20221222
  Receipt Date: 20221222
  Transmission Date: 20230113
  Serious: Yes (unspecified)
  Sender: FDA-Public Use
  Company Number: None

PATIENT
  Age: 50 Year
  Sex: Female
  Weight: 92.2 kg

DRUGS (4)
  1. DARZALEX [Suspect]
     Active Substance: DARATUMUMAB
     Indication: Acute myeloid leukaemia
     Dosage: OTHER FREQUENCY : ONE TIME INFUSION;?
     Route: 058
     Dates: start: 20221209, end: 20221209
  2. DIPHENHYDRAMINE [Suspect]
     Active Substance: DIPHENHYDRAMINE
     Dates: start: 20221209, end: 20221209
  3. ACETAMINOPHEN [Concomitant]
     Active Substance: ACETAMINOPHEN
     Dates: start: 20221209, end: 20221209
  4. SALINE [Concomitant]
     Active Substance: SODIUM CHLORIDE
     Dates: start: 20221209, end: 20221209

REACTIONS (2)
  - Dyspnoea [None]
  - Urticaria [None]

NARRATIVE: CASE EVENT DATE: 20221209
